FAERS Safety Report 12354861 (Version 1)
Quarter: 2016Q2

REPORT INFORMATION
  Report Type: Spontaneous
  Country: US (occurrence: US)
  Receive Date: 20160511
  Receipt Date: 20160511
  Transmission Date: 20160815
  Serious: Yes (Hospitalization, Other)
  Sender: FDA-Public Use
  Company Number: US-DRREDDYS-USA/USA/16/0079631

PATIENT
  Age: 4 Month
  Sex: Male
  Weight: 5.78 kg

DRUGS (1)
  1. AMOXICILLIN. [Suspect]
     Active Substance: AMOXICILLIN
     Indication: PNEUMONIA
     Route: 065

REACTIONS (11)
  - Disease progression [Unknown]
  - Cardiac murmur [Unknown]
  - Pyrexia [Recovered/Resolved]
  - Respiratory rate increased [Unknown]
  - Weight decreased [Recovered/Resolved]
  - Heart rate increased [Unknown]
  - Pneumonia [Unknown]
  - Drug resistance [Unknown]
  - White blood cell count increased [Unknown]
  - C-reactive protein increased [Unknown]
  - Anaemia [Recovered/Resolved]
